FAERS Safety Report 9447792 (Version 1)
Quarter: 2013Q3

REPORT INFORMATION
  Report Type: Spontaneous
  Country: FR (occurrence: None)
  Receive Date: 20130805
  Receipt Date: 20130805
  Transmission Date: 20140515
  Serious: Yes (Hospitalization)
  Sender: FDA-Public Use
  Company Number: 1760228

PATIENT
  Age: 67 Year
  Sex: Male

DRUGS (11)
  1. CARBOPLATIN [Suspect]
     Indication: LUNG ADENOCARCINOMA STAGE III
     Dosage: (NOT OTHERWISE SPECIFIED)
     Route: 042
     Dates: start: 20120608, end: 20120903
  2. PEMETREXED [Suspect]
     Indication: LUNG ADENOCARCINOMA STAGE III
     Dosage: (NOT OTHERWISE SPECIFIED)
     Route: 042
     Dates: start: 20120608, end: 20120903
  3. SPIRIVA [Concomitant]
  4. FORADIL [Concomitant]
  5. CRESTOR [Concomitant]
  6. COVERSYL /00790702/ [Concomitant]
  7. KARDEGIC [Concomitant]
  8. INEXIUM /01479302/ [Concomitant]
  9. DAFALGAN [Concomitant]
  10. EMEND /01627301/ [Concomitant]
  11. PREDNISONE [Concomitant]

REACTIONS (4)
  - Klebsiella bacteraemia [None]
  - Pancytopenia [None]
  - Dysphagia [None]
  - Pyrexia [None]
